FAERS Safety Report 7686706-X (Version None)
Quarter: 2011Q3

REPORT INFORMATION
  Report Type: 
  Country: None (occurrence: None)
  Receive Date: 20110816
  Receipt Date: 20110803
  Transmission Date: 20111222
  Serious: Yes (Other)
  Sender: FDA-Public Use
  Company Number: US-UCBSA-033433

PATIENT
  Sex: Female
  Weight: 50.34 kg

DRUGS (8)
  1. CIMZIA [Suspect]
     Indication: RHEUMATOID ARTHRITIS
     Route: 058
     Dates: start: 20101001
  2. METHOTREXATE [Concomitant]
     Indication: RHEUMATOID ARTHRITIS
     Route: 048
  3. FOLIC ACID [Concomitant]
     Route: 048
  4. LEVATORIUM [Concomitant]
     Indication: THYROID ATROPHY
     Route: 048
  5. HYDROXYCHLOROQUINE [Concomitant]
     Indication: RHEUMATOID ARTHRITIS
     Route: 048
  6. MELOXICAM [Concomitant]
     Indication: PAIN
     Route: 048
  7. LORAZEPAM [Concomitant]
     Indication: SLEEP DISORDER
     Dosage: HS
     Route: 048
  8. MELOXICAM [Concomitant]
     Indication: INFLAMMATION
     Route: 048

REACTIONS (4)
  - KIDNEY INFECTION [None]
  - MACULAR DEGENERATION [None]
  - CHEST PAIN [None]
  - FALL [None]
